FAERS Safety Report 22029123 (Version 1)
Quarter: 2023Q1

REPORT INFORMATION
  Report Type: Spontaneous
  Country: US (occurrence: None)
  Receive Date: 20230221
  Receipt Date: 20230221
  Transmission Date: 20230418
  Serious: No
  Sender: FDA-Public Use
  Company Number: None

PATIENT
  Age: 13 Year
  Sex: Female
  Weight: 57.6 kg

DRUGS (2)
  1. DUPIXENT [Suspect]
     Active Substance: DUPILUMAB
     Indication: Eosinophilic oesophagitis
     Dosage: OTHER FREQUENCY : WEEKLY;?
     Route: 003
     Dates: start: 20230109
  2. DUPIXENT [Concomitant]
     Active Substance: DUPILUMAB
     Dates: start: 20230109

REACTIONS (2)
  - Oral pain [None]
  - Pain in jaw [None]

NARRATIVE: CASE EVENT DATE: 20230221
